FAERS Safety Report 15767922 (Version 3)
Quarter: 2020Q1

REPORT INFORMATION
  Report Type: Spontaneous
  Country: HU (occurrence: HU)
  Receive Date: 20181227
  Receipt Date: 20200131
  Transmission Date: 20200409
  Serious: Yes (Death, Other)
  Sender: FDA-Public Use
  Company Number: HU-MYLANLABS-2018M1096184

PATIENT
  Sex: Female

DRUGS (6)
  1. FENTANYL. [Interacting]
     Active Substance: FENTANYL
     Indication: ANALGESIC THERAPY
     Dosage: UNK
     Route: 065
  2. TRAMADOL. [Interacting]
     Active Substance: TRAMADOL
     Indication: ANALGESIC THERAPY
     Dosage: UNK
     Route: 065
  3. NEXODAL [Concomitant]
     Indication: PRODUCT USED FOR UNKNOWN INDICATION
     Dosage: UNK
  4. CONTRAMAL [Interacting]
     Active Substance: TRAMADOL HYDROCHLORIDE
     Indication: ANALGESIC THERAPY
     Dosage: UNK
     Route: 065
  5. CITALOPRAM [Suspect]
     Active Substance: CITALOPRAM HYDROBROMIDE
     Indication: PRODUCT USED FOR UNKNOWN INDICATION
     Dosage: UNK
     Route: 065
  6. FRONTIN [Interacting]
     Active Substance: ALPRAZOLAM
     Indication: PRODUCT USED FOR UNKNOWN INDICATION
     Dosage: UNK
     Route: 065

REACTIONS (4)
  - Drug interaction [Fatal]
  - Neurological decompensation [Fatal]
  - Cardiac arrest [Fatal]
  - Overdose [Fatal]
